FAERS Safety Report 22826243 (Version 5)
Quarter: 2023Q4

REPORT INFORMATION
  Report Type: Report from Study
  Country: CA (occurrence: CA)
  Receive Date: 20230816
  Receipt Date: 20231025
  Transmission Date: 20240109
  Serious: Yes (Life-Threatening, Other)
  Sender: FDA-Public Use
  Company Number: CA-002147023-NVSC2023CA170097

PATIENT
  Age: 52 Year
  Sex: Female

DRUGS (11)
  1. COSENTYX [Suspect]
     Active Substance: SECUKINUMAB
     Indication: Ankylosing spondylitis
     Dosage: 150 MG, QW (WEEKS 0,1, 2, 3 AND 4)
     Route: 058
     Dates: start: 20230727
  2. COSENTYX [Suspect]
     Active Substance: SECUKINUMAB
     Dosage: UNK (RIGHT LEG)
     Route: 065
     Dates: start: 20230810
  3. COSENTYX [Suspect]
     Active Substance: SECUKINUMAB
     Dosage: 150 MG, QMO
     Route: 058
  4. COSENTYX [Suspect]
     Active Substance: SECUKINUMAB
     Dosage: UNK (ASSOCIATED INJECTION DATE)
     Route: 065
     Dates: start: 20230830
  5. IBUPROFEN [Concomitant]
     Active Substance: IBUPROFEN
     Indication: Product used for unknown indication
     Dosage: UNK
     Route: 048
  6. NAPROXEN [Concomitant]
     Active Substance: NAPROXEN
     Indication: Product used for unknown indication
     Dosage: UNK
     Route: 048
  7. SIMPONI [Concomitant]
     Active Substance: GOLIMUMAB
     Indication: Product used for unknown indication
     Dosage: UNK
     Route: 065
  8. HUMIRA [Concomitant]
     Active Substance: ADALIMUMAB
     Indication: Product used for unknown indication
     Dosage: UNK
     Route: 065
  9. UPADACITINIB [Concomitant]
     Active Substance: UPADACITINIB
     Indication: Product used for unknown indication
     Dosage: UNK (BRAND: RINOQ)
     Route: 065
  10. ETANERCEPT [Concomitant]
     Active Substance: ETANERCEPT
     Indication: Product used for unknown indication
     Dosage: UNK (BRAND: BRENZYS)
     Route: 065
  11. MORPHINE [Concomitant]
     Active Substance: MORPHINE
     Indication: Product used for unknown indication
     Dosage: UNK
     Route: 065

REACTIONS (28)
  - Pain [Not Recovered/Not Resolved]
  - Thrombosis [Unknown]
  - Meningitis [Unknown]
  - Illness [Unknown]
  - Headache [Unknown]
  - Rash [Unknown]
  - Peripheral swelling [Unknown]
  - Nausea [Unknown]
  - Asthenia [Unknown]
  - Hyperhidrosis [Unknown]
  - Poor peripheral circulation [Unknown]
  - Limb discomfort [Unknown]
  - Malaise [Unknown]
  - Injury [Unknown]
  - Arthralgia [Unknown]
  - Feeling hot [Unknown]
  - Head injury [Unknown]
  - Confusional state [Unknown]
  - Flatulence [Unknown]
  - Abdominal discomfort [Unknown]
  - Rash erythematous [Unknown]
  - Head discomfort [Unknown]
  - Swelling [Recovering/Resolving]
  - Ear pruritus [Unknown]
  - Otorrhoea [Unknown]
  - Tooth demineralisation [Unknown]
  - Muscular weakness [Unknown]
  - Therapeutic response shortened [Unknown]

NARRATIVE: CASE EVENT DATE: 20230810
